FAERS Safety Report 7321516-4 (Version None)
Quarter: 2011Q1

REPORT INFORMATION
  Report Type: 
  Country: None (occurrence: None)
  Receive Date: 20110228
  Receipt Date: 20110221
  Transmission Date: 20110831
  Serious: Yes (Other)
  Sender: FDA-Public Use
  Company Number: US-SANOFI-AVENTIS-2010SA078103

PATIENT
  Age: 52 Year
  Sex: Male

DRUGS (24)
  1. LANTUS [Suspect]
     Indication: TYPE 1 DIABETES MELLITUS
     Dosage: DOSE:58 UNIT(S)
     Route: 058
     Dates: start: 20100201
  2. ATIVAN [Concomitant]
  3. TUMS [Concomitant]
  4. IRON [Concomitant]
  5. PROTONIX [Concomitant]
  6. PRINIVIL [Concomitant]
  7. NEORAL [Concomitant]
  8. SULFAMETHOXAZOLE AND TRIMETHOPRIM [Concomitant]
     Route: 048
  9. SYNTHROID [Concomitant]
  10. DULCOLAX [Concomitant]
     Route: 048
  11. COLACE [Concomitant]
  12. MYFORTIC [Concomitant]
  13. RITALIN [Concomitant]
  14. ACETAMINOPHEN [Concomitant]
  15. HUMALOG [Concomitant]
     Indication: BLOOD GLUCOSE
     Dosage: SLIDING SCALE
  16. SIROLIMUS [Concomitant]
  17. NEORAL [Concomitant]
  18. INDERAL LA [Concomitant]
  19. ASPIRIN [Concomitant]
  20. SOLOSTAR [Suspect]
     Indication: TYPE 1 DIABETES MELLITUS
     Dates: start: 20100201
  21. LOPID [Concomitant]
  22. PAMELOR [Concomitant]
  23. LIPITOR [Concomitant]
  24. PROSCAR [Concomitant]

REACTIONS (2)
  - HYPOGLYCAEMIA [None]
  - PRODUCT QUALITY ISSUE [None]
